FAERS Safety Report 5115645-3 (Version None)
Quarter: 2006Q3

REPORT INFORMATION
  Report Type: 
  Country: None (occurrence: None)
  Receive Date: 20060927
  Receipt Date: 20060918
  Transmission Date: 20061208
  Serious: Yes (Hospitalization, Other)
  Sender: FDA-Public Use
  Company Number: GR-BRISTOL-MYERS SQUIBB COMPANY-13514443

PATIENT
  Age: 37 Year
  Sex: Male

DRUGS (4)
  1. CISPLATIN [Suspect]
     Indication: TESTIS CANCER
  2. BLEOMYCIN [Concomitant]
     Indication: TESTIS CANCER
  3. ETOPOSIDE [Concomitant]
     Indication: TESTIS CANCER
  4. IFOSFAMIDE [Concomitant]

REACTIONS (1)
  - CHONDROSARCOMA [None]
